FAERS Safety Report 6413619-3 (Version None)
Quarter: 2009Q4

REPORT INFORMATION
  Report Type: 
  Country: None (occurrence: None)
  Receive Date: 20091023
  Receipt Date: 20091023
  Transmission Date: 20100525
  Serious: Yes (Death)
  Sender: FDA-Public Use
  Company Number: None

PATIENT
  Age: 26 Year
  Sex: Male
  Weight: 195.9539 kg

DRUGS (2)
  1. SEROQUEL [Suspect]
     Indication: BIPOLAR DISORDER
     Dosage: 1 TAB BED TIME
     Dates: start: 20090101, end: 20090704
  2. SEROQUEL [Suspect]
     Indication: BIPOLAR DISORDER
     Dosage: 2 TABS BED TIME

REACTIONS (2)
  - CARDIOPULMONARY FAILURE [None]
  - DRUG TOXICITY [None]
